FAERS Safety Report 6836173-0 (Version None)
Quarter: 2010Q3

REPORT INFORMATION
  Report Type: 
  Country: None (occurrence: None)
  Receive Date: 20100713
  Receipt Date: 20100706
  Transmission Date: 20110219
  Serious: Yes (Hospitalization, Other)
  Sender: FDA-Public Use
  Company Number: DE-ROCHE-714257

PATIENT
  Sex: Female
  Weight: 84 kg

DRUGS (6)
  1. MYCOPHENOLATE MOFETIL [Suspect]
     Indication: PROPHYLAXIS AGAINST TRANSPLANT REJECTION
     Route: 048
     Dates: start: 20090908
  2. SANDIMMUNE [Suspect]
     Indication: PROPHYLAXIS AGAINST TRANSPLANT REJECTION
     Route: 048
     Dates: start: 20090601
  3. PREDNISOLON [Suspect]
     Indication: PROPHYLAXIS AGAINST TRANSPLANT REJECTION
     Route: 048
     Dates: start: 20090601
  4. METOPROLOL SUCCINATE [Concomitant]
     Route: 048
     Dates: start: 20090601
  5. AMLODIPINE [Concomitant]
     Route: 048
     Dates: start: 20090601
  6. PANTOZOL [Concomitant]
     Indication: PROPHYLAXIS
     Route: 048
     Dates: start: 20090601

REACTIONS (3)
  - COMPRESSION FRACTURE [None]
  - SEPSIS [None]
  - SUBCUTANEOUS ABSCESS [None]
